FAERS Safety Report 13849757 (Version 1)
Quarter: 2017Q3

REPORT INFORMATION
  Report Type: Spontaneous
  Country: US (occurrence: US)
  Receive Date: 20170809
  Receipt Date: 20170809
  Transmission Date: 20171127
  Serious: Yes (Hospitalization, Other)
  Sender: FDA-Public Use
  Company Number: US-009507513-1708USA000892

PATIENT
  Age: 74 Year
  Sex: Male
  Weight: 94.33 kg

DRUGS (5)
  1. ZOCOR [Suspect]
     Active Substance: SIMVASTATIN
     Dosage: UNK
     Route: 048
  2. AMIODARONE [Concomitant]
     Active Substance: AMIODARONE
     Dosage: UNK
     Route: 042
     Dates: start: 20170602
  3. AMIODARONE [Concomitant]
     Active Substance: AMIODARONE
     Dosage: UNK
     Route: 048
     Dates: start: 20170602
  4. PEPCID [Suspect]
     Active Substance: FAMOTIDINE
     Dosage: UNK
  5. LASIX [Concomitant]
     Active Substance: FUROSEMIDE
     Dosage: UNK

REACTIONS (4)
  - Blood magnesium decreased [Unknown]
  - Ventricular tachycardia [Not Recovered/Not Resolved]
  - Obstruction gastric [Not Recovered/Not Resolved]
  - Cardiac disorder [Not Recovered/Not Resolved]

NARRATIVE: CASE EVENT DATE: 2017
